FAERS Safety Report 18197571 (Version 1)
Quarter: 2020Q3

REPORT INFORMATION
  Report Type: Spontaneous
  Country: US (occurrence: US)
  Receive Date: 20200826
  Receipt Date: 20200826
  Transmission Date: 20201103
  Serious: Yes (Other)
  Sender: FDA-Public Use
  Company Number: US-DRREDDYS-USA/USA/20/0126336

PATIENT
  Age: 49 Year
  Sex: Female
  Weight: 54 kg

DRUGS (8)
  1. DOCETAXEL. [Suspect]
     Active Substance: DOCETAXEL
     Indication: BREAST CANCER STAGE III
     Dosage: EVERY 3 WEEK
     Route: 042
     Dates: start: 20190814, end: 2019
  2. DOCETAXEL. [Suspect]
     Active Substance: DOCETAXEL
     Dosage: EVERY 3 WEEK
     Route: 042
     Dates: start: 20190904, end: 2019
  3. TRASTUZUMAB. [Suspect]
     Active Substance: TRASTUZUMAB
     Dosage: EVERY 3 WEEK
     Dates: start: 201908, end: 2019
  4. CARBOPLATIN. [Suspect]
     Active Substance: CARBOPLATIN
     Indication: BREAST CANCER STAGE III
     Dosage: EVERY 3 WEEK
     Dates: start: 201909, end: 2019
  5. CARBOPLATIN. [Suspect]
     Active Substance: CARBOPLATIN
     Dosage: EVERY 3 WEEK
     Dates: start: 201908, end: 2019
  6. PERTUZUMAB. [Suspect]
     Active Substance: PERTUZUMAB
     Indication: BREAST CANCER STAGE III
     Dosage: EVERY 3 WEEK
     Dates: start: 201909, end: 2019
  7. TRASTUZUMAB. [Suspect]
     Active Substance: TRASTUZUMAB
     Indication: BREAST CANCER STAGE III
     Dosage: EVERY 3 WEEK
     Dates: start: 201909, end: 2019
  8. PERTUZUMAB. [Suspect]
     Active Substance: PERTUZUMAB
     Dosage: EVERY 3 WEEK
     Dates: start: 201908, end: 2019

REACTIONS (2)
  - Urinary tract infection [Recovered/Resolved]
  - Diarrhoea [Recovered/Resolved]

NARRATIVE: CASE EVENT DATE: 2019
